FAERS Safety Report 4412812-9 (Version None)
Quarter: 2004Q3

REPORT INFORMATION
  Report Type: 
  Country: None (occurrence: None)
  Receive Date: 20040802
  Receipt Date: 20030929
  Transmission Date: 20050211
  Serious: Yes (Other)
  Sender: FDA-Public Use
  Company Number: US-MERCK-0310USA00116

PATIENT
  Age: 17 Year
  Sex: Female
  Weight: 51 kg

DRUGS (10)
  1. [THERAPY UNSPECIFIED] [Concomitant]
     Route: 065
  2. HYDROCODONE BITARTRATE AND ACETAMINOPHEN [Concomitant]
     Route: 065
  3. CIPRO [Concomitant]
     Route: 065
  4. DIPHENHYDRAMINE HYDROCHLORIDE [Concomitant]
     Route: 065
  5. ORTHO TRI-CYCLEN [Concomitant]
     Route: 065
  6. PHENAZOPYRIDINE HYDROCHLORIDE [Concomitant]
     Route: 065
  7. VIOXX [Suspect]
     Indication: INFLAMMATION
     Route: 048
     Dates: start: 20011207, end: 20010101
  8. ZOLOFT [Concomitant]
     Route: 065
  9. SMZ-TMP [Concomitant]
     Route: 065
  10. DETROL [Concomitant]
     Route: 065

REACTIONS (11)
  - ABDOMINAL PAIN UPPER [None]
  - CHRONIC FATIGUE SYNDROME [None]
  - DIABETES MELLITUS [None]
  - EMOTIONAL DISTRESS [None]
  - GLUCOSE TOLERANCE IMPAIRED [None]
  - HEADACHE [None]
  - NAUSEA [None]
  - NEPHROLITHIASIS [None]
  - STENT PLACEMENT [None]
  - STOMACH DISCOMFORT [None]
  - SYSTEMIC LUPUS ERYTHEMATOSUS [None]
